FAERS Safety Report 7369681-7 (Version None)
Quarter: 2011Q1

REPORT INFORMATION
  Report Type: 
  Country: None (occurrence: None)
  Receive Date: 20110323
  Receipt Date: 20110316
  Transmission Date: 20110831
  Serious: Yes (Other)
  Sender: FDA-Public Use
  Company Number: US-BRISTOL-MYERS SQUIBB COMPANY-15612278

PATIENT
  Age: 56 Year
  Sex: Male

DRUGS (1)
  1. ABILIFY [Suspect]
     Dosage: REDUCED THE ABILIFY DOSAGE TO 20 MG ABOUT 3 WEEKS AGO
     Dates: end: 20110315

REACTIONS (1)
  - RETINAL INJURY [None]
